FAERS Safety Report 19314206 (Version 1)
Quarter: 2021Q2

REPORT INFORMATION
  Report Type: Spontaneous
  Country: US (occurrence: US)
  Receive Date: 20210527
  Receipt Date: 20210527
  Transmission Date: 20210717
  Serious: No
  Sender: FDA-Public Use
  Company Number: None

PATIENT
  Sex: Female
  Weight: 76.5 kg

DRUGS (1)
  1. TOPOTECAN [Suspect]
     Active Substance: TOPOTECAN HYDROCHLORIDE
     Dates: end: 20210430

REACTIONS (10)
  - Platelet count decreased [None]
  - Confusional state [None]
  - Fall [None]
  - Cellulitis [None]
  - Lethargy [None]
  - Somnolence [None]
  - White blood cell count decreased [None]
  - Epistaxis [None]
  - Blood lactic acid increased [None]
  - Anaemia [None]

NARRATIVE: CASE EVENT DATE: 20210510
